FAERS Safety Report 7448952-X (Version None)
Quarter: 2011Q2

REPORT INFORMATION
  Report Type: 
  Country: None (occurrence: None)
  Receive Date: 20110429
  Receipt Date: 20090326
  Transmission Date: 20111010
  Serious: Yes (Hospitalization, Other)
  Sender: FDA-Public Use
  Company Number: DE-GENENTECH-317669

PATIENT
  Age: 83 Year
  Sex: Female

DRUGS (1)
  1. LUCENTIS [Suspect]
     Indication: MACULAR DEGENERATION
     Dosage: UNK
     Route: 031
     Dates: start: 20090123

REACTIONS (8)
  - DIZZINESS [None]
  - CHOROIDAL NEOVASCULARISATION [None]
  - VISUAL IMPAIRMENT [None]
  - VISUAL ACUITY REDUCED [None]
  - HEART RATE INCREASED [None]
  - EYE HAEMORRHAGE [None]
  - VITREOUS HAEMORRHAGE [None]
  - GAIT DISTURBANCE [None]
